FAERS Safety Report 6389567-4 (Version None)
Quarter: 2009Q4

REPORT INFORMATION
  Report Type: 
  Country: None (occurrence: None)
  Receive Date: 20091003
  Receipt Date: 20090929
  Transmission Date: 20100525
  Serious: Yes (Other)
  Sender: FDA-Public Use
  Company Number: A0809503A

PATIENT
  Age: 88 Year
  Sex: Female

DRUGS (1)
  1. ASPIRIN [Suspect]
     Indication: ARTHRITIS
     Dosage: 325 MG, FIVE TIMES PER DAY, ORAL
     Route: 048
     Dates: start: 20090801, end: 20090927

REACTIONS (7)
  - ASTHMA [None]
  - COUGH [None]
  - DYSPHAGIA [None]
  - EYE PAIN [None]
  - LYMPHADENOPATHY [None]
  - PHARYNGEAL OEDEMA [None]
  - VISION BLURRED [None]
